FAERS Safety Report 8940975 (Version 2)
Quarter: 2013Q1

REPORT INFORMATION
  Report Type: Spontaneous
  Country: DK (occurrence: CA)
  Receive Date: 20121203
  Receipt Date: 20130222
  Transmission Date: 20140127
  Serious: Yes (Other)
  Sender: FDA-Public Use
  Company Number: CA-FRI-1000040716

PATIENT
  Sex: Female

DRUGS (1)
  1. CELEXA [Suspect]
     Dosage: 60 MG
     Route: 064
     Dates: end: 2003

REACTIONS (3)
  - Crying [Not Recovered/Not Resolved]
  - Foetal exposure during pregnancy [Not Recovered/Not Resolved]
  - Insomnia [Not Recovered/Not Resolved]
